FAERS Safety Report 9829122 (Version 1)
Quarter: 2014Q1

REPORT INFORMATION
  Report Type: Spontaneous
  Country: US (occurrence: US)
  Receive Date: 20140119
  Receipt Date: 20140119
  Transmission Date: 20141002
  Serious: No
  Sender: FDA-Public Use
  Company Number: US-009507513-1401USA006523

PATIENT
  Sex: 0

DRUGS (2)
  1. ZETIA [Suspect]
  2. NOVOLOG [Suspect]

REACTIONS (1)
  - Arthralgia [Unknown]
